FAERS Safety Report 10584607 (Version 1)
Quarter: 2014Q4

REPORT INFORMATION
  Report Type: Spontaneous
  Country: HU (occurrence: HU)
  Receive Date: 20141114
  Receipt Date: 20141114
  Transmission Date: 20150529
  Serious: Yes (Other)
  Sender: FDA-Public Use
  Company Number: HU-WATSON-2014-24221

PATIENT

DRUGS (11)
  1. VANCOMYCIN (UNKNOWN) [Suspect]
     Active Substance: VANCOMYCIN
     Indication: ACINETOBACTER INFECTION
  2. TEICOPLANIN (UNKNOWN) [Suspect]
     Active Substance: TEICOPLANIN
     Indication: STAPHYLOCOCCAL INFECTION
     Dosage: UNK
     Route: 065
  3. TEICOPLANIN (UNKNOWN) [Suspect]
     Active Substance: TEICOPLANIN
     Indication: ACINETOBACTER INFECTION
  4. COLOMYCIN                          /00013203/ [Suspect]
     Active Substance: COLISTIN
     Indication: ACINETOBACTER INFECTION
  5. VANCOMYCIN (UNKNOWN) [Suspect]
     Active Substance: VANCOMYCIN
     Indication: ESCHERICHIA INFECTION
  6. METRONIDAZOLE (UNKNOWN) [Suspect]
     Active Substance: BISMUTH SUBSALICYLATE\METRONIDAZOLE\TETRACYCLINE HYDROCHLORIDE
     Indication: ESCHERICHIA INFECTION
  7. VANCOMYCIN (UNKNOWN) [Suspect]
     Active Substance: VANCOMYCIN
     Indication: CLOSTRIDIUM DIFFICILE COLITIS
     Dosage: 4 X 250 MG
     Route: 050
  8. COLOMYCIN /00013203/ [Suspect]
     Active Substance: COLISTIN
     Indication: STAPHYLOCOCCAL INFECTION
     Dosage: UNK
     Route: 065
  9. METRONIDAZOLE (UNKNOWN) [Suspect]
     Active Substance: BISMUTH SUBSALICYLATE\METRONIDAZOLE\TETRACYCLINE HYDROCHLORIDE
     Indication: CLOSTRIDIUM DIFFICILE COLITIS
     Dosage: 3 X 500 MG
     Route: 042
  10. CIPROFLOXACIN HYDROCHLORIDE (UNKNOWN) [Suspect]
     Active Substance: CIPROFLOXACIN HYDROCHLORIDE
     Indication: ESCHERICHIA INFECTION
     Dosage: UNK
     Route: 065
  11. METRONIDAZOLE (UNKNOWN) [Suspect]
     Active Substance: BISMUTH SUBSALICYLATE\METRONIDAZOLE\TETRACYCLINE HYDROCHLORIDE
     Indication: ACINETOBACTER INFECTION

REACTIONS (2)
  - Pathogen resistance [Unknown]
  - Drug ineffective [Unknown]
